FAERS Safety Report 22655690 (Version 1)
Quarter: 2023Q2

REPORT INFORMATION
  Report Type: Spontaneous
  Country: CA (occurrence: CA)
  Receive Date: 20230629
  Receipt Date: 20230629
  Transmission Date: 20230722
  Serious: Yes (Death)
  Sender: FDA-Public Use
  Company Number: CA-PFIZER INC-PV202200010454

PATIENT
  Age: 56 Year
  Sex: Male
  Weight: 106 kg

DRUGS (5)
  1. BRAFTOVI [Suspect]
     Active Substance: ENCORAFENIB
     Dosage: 75 MG, 4 CAPS
     Route: 048
  2. MEKTOVI [Suspect]
     Active Substance: BINIMETINIB
     Dosage: UNK
     Dates: start: 20220628
  3. APIXABAN [Concomitant]
     Active Substance: APIXABAN
     Dosage: 5MG TABLETS- 2 TABS BID 14 TABS
     Route: 065
  4. APIXABAN [Concomitant]
     Active Substance: APIXABAN
     Dosage: 5MG TABS-1 TAB BID 60 TABS
     Route: 065
  5. BINIMETINIB [Concomitant]
     Active Substance: BINIMETINIB
     Dosage: 15 MG, 3 TABS
     Route: 048

REACTIONS (3)
  - Death [Fatal]
  - Prescribed underdose [Unknown]
  - Dysphagia [Unknown]

NARRATIVE: CASE EVENT DATE: 20220827
